FAERS Safety Report 8774116 (Version 1)
Quarter: 2012Q4

REPORT INFORMATION
  Report Type: 
  Country: US (occurrence: US)
  Receive Date: 20120907
  Receipt Date: 20120907
  Transmission Date: 20130627
  Serious: Yes (Hospitalization, Other)
  Sender: FDA-Public Use
  Company Number: US-JNJFOC-20120814049

PATIENT
  Age: 14 Year
  Sex: Female

DRUGS (2)
  1. ORTHO-NOVUM 1/35-21 [Suspect]
     Indication: MENORRHAGIA
     Dosage: started 3 weeks earlier
     Route: 065
  2. DOXYCYCLINE HYDROCHLORIDE [Suspect]
     Indication: ACNE
     Route: 065

REACTIONS (8)
  - Cerebrovascular accident [Unknown]
  - Off label use [Unknown]
  - Hypotension [None]
  - FORAMEN OVALE PATENT [None]
  - Atrial septal defect [None]
  - Right ventricular hypertrophy [None]
  - Respiratory failure [None]
  - Pulmonary veno-occlusive disease [None]
